FAERS Safety Report 8798631 (Version 1)
Quarter: 2012Q4

REPORT INFORMATION
  Report Type: 
  Country: US (occurrence: US)
  Receive Date: 20120917
  Receipt Date: 20120917
  Transmission Date: 20130627
  Serious: Yes (Hospitalization, Disabling, Other)
  Sender: FDA-Public Use
  Company Number: US-009507513-1111USA00988

PATIENT

DRUGS (20)
  1. FOSAMAX [Suspect]
     Indication: OSTEOPOROSIS
     Dosage: 10 mg, UNK
     Route: 048
     Dates: start: 19970117, end: 20001113
  2. FOSAMAX [Suspect]
     Dosage: 70 mg, QW
     Route: 048
     Dates: start: 20001113
  3. FOSAMAX D [Suspect]
     Indication: OSTEOPOROSIS
     Dosage: 70mg/2800IU
     Route: 048
     Dates: start: 20071213
  4. FOSAMAX [Suspect]
     Indication: OSTEOPOROSIS
     Dosage: 70 mg, QW
     Route: 048
     Dates: start: 20090403
  5. THERAPY UNSPECIFIED [Concomitant]
     Indication: STEROID THERAPY
     Dates: start: 1974
  6. MK-9278 [Concomitant]
     Indication: ROUTINE HEALTH MAINTENANCE
     Dosage: UNK UNK, qd
     Dates: start: 19950101
  7. METICORTEN [Concomitant]
  8. AZULFIDINE [Concomitant]
     Dosage: 2 DF, bid
  9. AZULFIDINE [Concomitant]
     Dosage: UNK
  10. ASACOL [Concomitant]
     Dosage: 400 mg, bid
  11. CELEBREX [Concomitant]
     Dosage: UNK UNK, qd
  12. MIACALCIN [Concomitant]
  13. IRON (UNSPECIFIED) [Concomitant]
     Dosage: UNK UNK, qd
  14. CALCIUM (UNSPECIFIED) [Concomitant]
     Dosage: UNK UNK, qd
  15. THYROID [Concomitant]
     Dosage: UNK UNK, qd
  16. PEPCID [Concomitant]
     Dosage: UNK UNK, bid
  17. PREDNISONE [Concomitant]
     Dosage: 10 mg, bid
  18. PREDNISONE [Concomitant]
     Dosage: 2.5 mg, UNK
  19. LEFLUNOMIDE [Concomitant]
     Dosage: 20 mg, qd
  20. PENTASA [Concomitant]
     Dosage: 500 mg, bid

REACTIONS (42)
  - Low turnover osteopathy [Not Recovered/Not Resolved]
  - Femur fracture [Not Recovered/Not Resolved]
  - Device dislocation [Unknown]
  - Device failure [Unknown]
  - Intramedullary rod insertion [Unknown]
  - Acetabulum fracture [Unknown]
  - Fracture malunion [Unknown]
  - Anaemia [Unknown]
  - Enteritis [Unknown]
  - Anaemia [Unknown]
  - Chronic lymphocytic leukaemia [Not Recovered/Not Resolved]
  - Crohn^s disease [Unknown]
  - Fracture nonunion [Unknown]
  - Femur fracture [Unknown]
  - Synovitis [Unknown]
  - Gallbladder disorder [Unknown]
  - Hypothyroidism [Not Recovered/Not Resolved]
  - Anaemia [Unknown]
  - Decreased appetite [Unknown]
  - Body height decreased [Unknown]
  - Depression [Unknown]
  - Musculoskeletal disorder [Unknown]
  - Foreign body [Unknown]
  - Hyperlipidaemia [Unknown]
  - Mass [Unknown]
  - Urinary tract infection [Unknown]
  - Swelling [Unknown]
  - Drug intolerance [Unknown]
  - Anxiety [Unknown]
  - Synovitis [Unknown]
  - Dactylitis [Unknown]
  - Sedation [Unknown]
  - Fall [Unknown]
  - Deformity [Unknown]
  - Osteopenia [Unknown]
  - Urticaria [Unknown]
  - Urticaria [Unknown]
  - Rash [Unknown]
  - Pruritus [Unknown]
  - Drug ineffective [Unknown]
  - Drug ineffective [Unknown]
  - Urticaria [Unknown]
